FAERS Safety Report 7824201-5 (Version None)
Quarter: 2011Q4

REPORT INFORMATION
  Report Type: 
  Country: None (occurrence: None)
  Receive Date: 20111019
  Receipt Date: 20111005
  Transmission Date: 20120403
  Serious: Yes (Hospitalization, Other)
  Sender: FDA-Public Use
  Company Number: US-BAYER-2011-052428

PATIENT
  Age: 40 Year
  Sex: Female
  Weight: 82.54 kg

DRUGS (7)
  1. IMURAN [Concomitant]
     Dosage: 50 MG
     Route: 048
  2. ASACOL [Concomitant]
     Route: 048
  3. ALLEGRA [Concomitant]
     Dosage: DAILY DOSE 180 MG
     Route: 048
  4. MULTIPLE VITAMINS [Concomitant]
     Route: 048
  5. YAZ [Suspect]
     Dosage: UNK
     Dates: start: 20080801, end: 20090101
  6. FOLIC ACID [Concomitant]
     Route: 048
  7. YAZ [Suspect]
     Indication: ORAL CONTRACEPTION
     Dosage: UNK
     Dates: start: 20080801, end: 20090101

REACTIONS (5)
  - NAUSEA [None]
  - CHOLECYSTITIS CHRONIC [None]
  - PAIN [None]
  - ABDOMINAL PAIN UPPER [None]
  - GALLBLADDER PAIN [None]
